FAERS Safety Report 9506973 (Version 3)
Quarter: 2014Q1

REPORT INFORMATION
  Report Type: Spontaneous
  Country: US (occurrence: US)
  Receive Date: 20130909
  Receipt Date: 20140106
  Transmission Date: 20141002
  Serious: Yes (Hospitalization, Other)
  Sender: FDA-Public Use
  Company Number: US-BAYER-2013-104168

PATIENT
  Age: 22 Year
  Sex: Female
  Weight: 82.54 kg

DRUGS (1)
  1. MIRENA [Suspect]
     Indication: CONTRACEPTION
     Dosage: 20 MCG/24HR, CONT
     Route: 015
     Dates: start: 20120223, end: 20130126

REACTIONS (12)
  - Genital haemorrhage [None]
  - Uterine perforation [None]
  - Injury [None]
  - Pain [None]
  - Emotional distress [None]
  - Scar [None]
  - Urinary incontinence [None]
  - Scratch [None]
  - Loss of libido [None]
  - Device issue [None]
  - Mental disorder [None]
  - Menorrhagia [None]
